FAERS Safety Report 13842025 (Version 1)
Quarter: 2017Q3

REPORT INFORMATION
  Report Type: Report from Study
  Country: US (occurrence: US)
  Receive Date: 20170807
  Receipt Date: 20170807
  Transmission Date: 20171127
  Serious: No
  Sender: FDA-Public Use
  Company Number: US-AMGEN-USASL2017112589

PATIENT
  Age: 62 Year
  Sex: Female

DRUGS (1)
  1. NPLATE [Suspect]
     Active Substance: ROMIPLOSTIM
     Indication: IMMUNE THROMBOCYTOPENIC PURPURA
     Dosage: 1 MUG/KG, QWK
     Route: 065
     Dates: start: 201703

REACTIONS (6)
  - Fatigue [Unknown]
  - Platelet count abnormal [Unknown]
  - Musculoskeletal pain [Unknown]
  - Drug dose omission [Unknown]
  - Arthralgia [Unknown]
  - Drug effect incomplete [Unknown]

NARRATIVE: CASE EVENT DATE: 2017
